FAERS Safety Report 25445638 (Version 5)
Quarter: 2025Q3

REPORT INFORMATION
  Report Type: Report from Study
  Country: US (occurrence: US)
  Receive Date: 20250617
  Receipt Date: 20250708
  Transmission Date: 20251020
  Serious: Yes (Other)
  Sender: ABBVIE
  Company Number: US-ABBVIE-6323578

PATIENT
  Age: 73 Year
  Sex: Male

DRUGS (2)
  1. BOTOX [Suspect]
     Active Substance: ONABOTULINUMTOXINA
     Indication: Hypertonic bladder
     Route: 065
     Dates: start: 202505, end: 202505
  2. BOTOX [Suspect]
     Active Substance: ONABOTULINUMTOXINA
     Indication: Hypertonic bladder
     Route: 065
     Dates: start: 20250319, end: 20250319

REACTIONS (9)
  - Aortic arteriosclerosis [Unknown]
  - Dysuria [Not Recovered/Not Resolved]
  - Urinary retention [Recovered/Resolved]
  - Urinary retention [Recovering/Resolving]
  - Back pain [Unknown]
  - Drug ineffective [Not Recovered/Not Resolved]
  - Micturition urgency [Unknown]
  - Bladder discomfort [Recovering/Resolving]
  - Dysuria [Recovered/Resolved]

NARRATIVE: CASE EVENT DATE: 20250301
